FAERS Safety Report 7773116-X (Version None)
Quarter: 2011Q3

REPORT INFORMATION
  Report Type: 
  Country: None (occurrence: None)
  Receive Date: 20110922
  Receipt Date: 20100115
  Transmission Date: 20111222
  Serious: No
  Sender: FDA-Public Use
  Company Number: US-ASTRAZENECA-2009SE16676

PATIENT
  Age: 60 Year
  Sex: Female
  Weight: 142.4 kg

DRUGS (5)
  1. SEROQUEL [Suspect]
     Route: 048
     Dates: start: 20011023
  2. ZOLOFT [Concomitant]
     Dates: start: 20011019
  3. LOXAPINE HCL [Concomitant]
     Dosage: 10 MG -25 MG
     Dates: start: 20010912
  4. SEROQUEL [Suspect]
     Indication: MENTAL DISORDER
     Dosage: 50 MG MAYBE OTHER DOSES AS WELL
     Route: 048
     Dates: start: 20000101, end: 20090101
  5. ABILIFY [Concomitant]
     Dates: start: 20090101

REACTIONS (3)
  - TYPE 2 DIABETES MELLITUS [None]
  - WEIGHT INCREASED [None]
  - OBESITY [None]
